FAERS Safety Report 13829217 (Version 1)
Quarter: 2017Q3

REPORT INFORMATION
  Report Type: Spontaneous
  Country: US (occurrence: US)
  Receive Date: 20170802
  Receipt Date: 20170802
  Transmission Date: 20171127
  Serious: Yes (Hospitalization)
  Sender: FDA-Public Use
  Company Number: None

PATIENT
  Age: 60 Year
  Sex: Male

DRUGS (1)
  1. LEUPROLIDE [Suspect]
     Active Substance: LEUPROLIDE
     Route: 058
     Dates: start: 20170105, end: 20170516

REACTIONS (3)
  - Acute kidney injury [None]
  - Tachycardia [None]
  - Hyperglycaemia [None]

NARRATIVE: CASE EVENT DATE: 20170516
